FAERS Safety Report 8313907-X (Version None)
Quarter: 2012Q2

REPORT INFORMATION
  Report Type: 
  Country: None (occurrence: None)
  Receive Date: 20120426
  Receipt Date: 20120426
  Transmission Date: 20120825
  Serious: Yes (Life-Threatening)
  Sender: FDA-Public Use
  Company Number: None

PATIENT
  Age: 74 Year
  Sex: Male
  Weight: 79.378 kg

DRUGS (2)
  1. BRIMONIDINE TARTRATE [Concomitant]
  2. BRIMONIDINE TARTRATE [Suspect]
     Indication: GLAUCOMA
     Dosage: ONE DROP IN EACH EYE
     Dates: start: 20120301, end: 20120418

REACTIONS (4)
  - LETHARGY [None]
  - PAIN IN EXTREMITY [None]
  - MUSCULOSKELETAL PAIN [None]
  - GAIT DISTURBANCE [None]
